FAERS Safety Report 6386157-4 (Version None)
Quarter: 2009Q4

REPORT INFORMATION
  Report Type: 
  Country: None (occurrence: None)
  Receive Date: 20091002
  Receipt Date: 20081226
  Transmission Date: 20100525
  Serious: No
  Sender: FDA-Public Use
  Company Number: US-ASTRAZENECA-2008UW28787

PATIENT
  Age: 18332 Day
  Sex: Female

DRUGS (1)
  1. ARIMIDEX [Suspect]
     Dosage: UNKNOWN
     Route: 048
     Dates: start: 20051228

REACTIONS (4)
  - AGGRESSION [None]
  - HOT FLUSH [None]
  - HYPERHIDROSIS [None]
  - WEIGHT INCREASED [None]
